FAERS Safety Report 9445811 (Version 2)
Quarter: 2013Q4

REPORT INFORMATION
  Report Type: Spontaneous
  Country: US (occurrence: US)
  Receive Date: 20130807
  Receipt Date: 20131219
  Transmission Date: 20140711
  Serious: Yes (Hospitalization)
  Sender: FDA-Public Use
  Company Number: US-B.I. PHARMACEUTICALS,INC./RIDGEFIELD-2013-BI-23868BP

PATIENT
  Age: 89 Year
  Sex: Male
  Weight: 92.99 kg

DRUGS (20)
  1. PRADAXA [Suspect]
     Dosage: 300 MG
     Route: 048
     Dates: start: 20110522, end: 20110707
  2. MIRALAX [Concomitant]
     Dosage: 17 G
     Route: 048
  3. BUMEX [Concomitant]
     Dosage: 2 MG
     Route: 048
  4. MICRO K [Concomitant]
     Dosage: 40 MEQ
     Route: 048
  5. IMDUR [Concomitant]
     Dosage: 60 MG
     Route: 048
  6. COREG [Concomitant]
     Dosage: 12.5 MG
     Route: 048
  7. ULTRAM [Concomitant]
     Indication: PAIN
     Route: 048
  8. PRAVACHOL [Concomitant]
     Dosage: 40 MG
     Route: 048
  9. ZAROXOLYN [Concomitant]
     Route: 048
  10. VITAMIN C [Concomitant]
     Dosage: 500 MG
     Route: 048
  11. OXYGEN [Concomitant]
     Route: 048
  12. BENICAR [Concomitant]
     Dosage: 10 MG
     Route: 048
  13. COQ10 [Concomitant]
     Dosage: 200 MG
     Route: 048
  14. L-CARNITINE [Concomitant]
     Dosage: 4000 MG
     Route: 048
  15. TYLENOL [Concomitant]
     Indication: PAIN
     Route: 048
  16. VITAMIN D3 [Concomitant]
     Route: 048
  17. CALCIUM [Concomitant]
     Dosage: 1800 MG
     Route: 048
  18. COLACE [Concomitant]
     Dosage: 200 MG
     Route: 048
  19. ASPIRIN [Concomitant]
     Dosage: 81 MG
     Route: 048
  20. NITROQUICK [Concomitant]
     Indication: CHEST PAIN
     Route: 060

REACTIONS (1)
  - Gastrointestinal haemorrhage [Unknown]
